FAERS Safety Report 8064191-6 (Version None)
Quarter: 2012Q1

REPORT INFORMATION
  Report Type: 
  Country: None (occurrence: None)
  Receive Date: 20120123
  Receipt Date: 20120119
  Transmission Date: 20120608
  Serious: Yes (Death, Hospitalization)
  Sender: FDA-Public Use
  Company Number: BR-ROCHE-803660

PATIENT
  Age: 51 Year
  Sex: Female
  Weight: 48 kg

DRUGS (6)
  1. ACETAMINOPHEN [Concomitant]
     Indication: RHEUMATOID ARTHRITIS
     Dosage: 40 DROPS
     Route: 048
     Dates: start: 20091001
  2. GOLIMUMAB [Concomitant]
     Indication: RHEUMATOID ARTHRITIS
     Route: 058
     Dates: start: 20100930, end: 20110411
  3. ACTEMRA [Suspect]
     Indication: RHEUMATOID ARTHRITIS
     Dosage: DATE OF LAST DOSE PRIOR TO SAE: 15 SEP 2011
     Route: 058
  4. FOLIC ACID [Concomitant]
     Indication: TOXICITY TO VARIOUS AGENTS
     Route: 048
     Dates: start: 20091001
  5. METHOTREXATE [Concomitant]
     Indication: RHEUMATOID ARTHRITIS
     Route: 048
     Dates: start: 20091001
  6. PREDNISONE [Concomitant]
     Indication: RHEUMATOID ARTHRITIS
     Route: 048
     Dates: start: 20091001

REACTIONS (2)
  - PLEURAL EFFUSION [None]
  - LUNG INFECTION [None]
